FAERS Safety Report 26119207 (Version 2)
Quarter: 2025Q4

REPORT INFORMATION
  Report Type: Spontaneous
  Country: EU (occurrence: EU)
  Receive Date: 20251204
  Receipt Date: 20251209
  Transmission Date: 20260119
  Serious: Yes (Death, Hospitalization, Other)
  Sender: CELLTRION
  Company Number: EU-ROCHE-10000437832

PATIENT

DRUGS (10)
  1. RITUXIMAB [Suspect]
     Active Substance: RITUXIMAB
     Indication: Follicular lymphoma
     Route: 065
  2. TOCILIZUMAB [Suspect]
     Active Substance: TOCILIZUMAB
     Indication: Cytokine release syndrome
     Dosage: UNK
     Route: 065
  3. CYCLOPHOSPHAMIDE [Concomitant]
     Active Substance: CYCLOPHOSPHAMIDE
  4. VINCRISTINE [Concomitant]
     Active Substance: VINCRISTINE
  5. PREDNISONE [Concomitant]
     Active Substance: PREDNISONE
  6. DEXAMETHASONE [Concomitant]
     Active Substance: DEXAMETHASONE
  7. PLATINUM [Concomitant]
     Active Substance: PLATINUM
  8. TAZEMETOSTAT [Concomitant]
     Active Substance: TAZEMETOSTAT
  9. AZACITIDINE [Concomitant]
     Active Substance: AZACITIDINE
  10. VENETOCLAX [Concomitant]
     Active Substance: VENETOCLAX

REACTIONS (4)
  - Disease progression [Fatal]
  - Bronchopulmonary aspergillosis [Unknown]
  - Influenza [Unknown]
  - Pancytopenia [Recovering/Resolving]
